FAERS Safety Report 17435338 (Version 2)
Quarter: 2021Q3

REPORT INFORMATION
  Report Type: Spontaneous
  Country: US (occurrence: US)
  Receive Date: 20200219
  Receipt Date: 20210720
  Transmission Date: 20211014
  Serious: Yes (Hospitalization)
  Sender: FDA-Public Use
  Company Number: US-JNJFOC-20200220907

PATIENT
  Age: 43 Year
  Sex: Male
  Weight: 111.23 kg

DRUGS (1)
  1. INVOKANA [Suspect]
     Active Substance: CANAGLIFLOZIN
     Indication: PRODUCT USED FOR UNKNOWN INDICATION
     Route: 048

REACTIONS (4)
  - Osteomyelitis acute [Unknown]
  - Toe amputation [Unknown]
  - Gangrene [Unknown]
  - Diabetic foot [Unknown]

NARRATIVE: CASE EVENT DATE: 201801
